FAERS Safety Report 24560310 (Version 1)
Quarter: 2024Q4

REPORT INFORMATION
  Report Type: Spontaneous
  Country: US (occurrence: None)
  Receive Date: 20241028
  Receipt Date: 20241028
  Transmission Date: 20250115
  Serious: Yes (Life-Threatening)
  Sender: Public
  Company Number: None

PATIENT
  Age: 49 Year
  Sex: Female
  Weight: 70.1 kg

DRUGS (1)
  1. ALBUTEROL [Suspect]
     Active Substance: ALBUTEROL

REACTIONS (1)
  - Bronchospasm paradoxical [None]

NARRATIVE: CASE EVENT DATE: 20241016
